FAERS Safety Report 11870260 (Version 2)
Quarter: 2016Q1

REPORT INFORMATION
  Report Type: Report from Study
  Country: AR (occurrence: AR)
  Receive Date: 20151228
  Receipt Date: 20160115
  Transmission Date: 20160526
  Serious: Yes (Hospitalization)
  Sender: FDA-Public Use
  Company Number: PHHY2015AR168184

PATIENT
  Age: 74 Year
  Sex: Male

DRUGS (3)
  1. ACEMUK [Concomitant]
     Indication: PRODUCT USED FOR UNKNOWN INDICATION
     Dosage: AS NEEDED
     Route: 065
  2. ULTIBRO BREEZHALER [Suspect]
     Active Substance: GLYCOPYRRONIUM\INDACATEROL
     Indication: CHRONIC OBSTRUCTIVE PULMONARY DISEASE
     Dosage: 1 DF, QD
     Route: 065
     Dates: start: 20151016
  3. ACENOCUMAROL [Concomitant]
     Active Substance: ACENOCOUMAROL
     Indication: PRODUCT USED FOR UNKNOWN INDICATION
     Dosage: 4 MG,
     Route: 065

REACTIONS (17)
  - International normalised ratio increased [Recovering/Resolving]
  - Skin injury [Recovering/Resolving]
  - Viral infection [Recovering/Resolving]
  - Pulmonary hypertension [Unknown]
  - Peripheral swelling [Recovering/Resolving]
  - Mouth haemorrhage [Recovering/Resolving]
  - Pain [Recovering/Resolving]
  - Haematoma [Unknown]
  - Haematemesis [Unknown]
  - Pyrexia [Recovering/Resolving]
  - Decreased immune responsiveness [Recovering/Resolving]
  - Decreased appetite [Unknown]
  - Bronchospasm [Recovering/Resolving]
  - Haemorrhage [Recovering/Resolving]
  - Pain in extremity [Unknown]
  - Swelling [Unknown]
  - Oedema peripheral [Recovering/Resolving]

NARRATIVE: CASE EVENT DATE: 20151128
